FAERS Safety Report 14197866 (Version 1)
Quarter: 2017Q4

REPORT INFORMATION
  Report Type: Spontaneous
  Country: DE (occurrence: DE)
  Receive Date: 20171117
  Receipt Date: 20171117
  Transmission Date: 20180321
  Serious: No
  Sender: FDA-Public Use
  Company Number: DE-LUPIN PHARMACEUTICALS INC.-2017-06009

PATIENT
  Age: 49 Year
  Sex: Female

DRUGS (2)
  1. PAROXETIN-HORMOSAN TROPFEN [Suspect]
     Active Substance: PAROXETINE MESYLATE
     Indication: OBSESSIVE-COMPULSIVE DISORDER
     Dosage: UNK (2 DROPS IN THE MORNING AND 2 DROPS AT NOON)
     Route: 048
  2. LAFAMME [Concomitant]
     Active Substance: DIENOGEST\ESTRADIOL VALERATE
     Indication: HORMONE LEVEL ABNORMAL
     Dosage: UNK
     Route: 065

REACTIONS (5)
  - Insomnia [Not Recovered/Not Resolved]
  - Middle insomnia [None]
  - Eye swelling [Not Recovered/Not Resolved]
  - Intraocular pressure increased [Not Recovered/Not Resolved]
  - Off label use [Unknown]
